FAERS Safety Report 21022997 (Version 1)
Quarter: 2022Q2

REPORT INFORMATION
  Report Type: Spontaneous
  Country: US (occurrence: None)
  Receive Date: 20220629
  Receipt Date: 20220629
  Transmission Date: 20220721
  Serious: Yes (Hospitalization)
  Sender: FDA-Public Use
  Company Number: None

PATIENT
  Sex: Female
  Weight: 79.3 kg

DRUGS (4)
  1. FLUOROURACIL [Suspect]
     Active Substance: FLUOROURACIL
  2. CAMPTOSAR [Concomitant]
     Active Substance: IRINOTECAN HYDROCHLORIDE
  3. LEUCOVORIN CALCIUM [Concomitant]
     Active Substance: LEUCOVORIN CALCIUM
  4. ELOXATIN [Concomitant]
     Active Substance: OXALIPLATIN

REACTIONS (12)
  - Post procedural complication [None]
  - Hypotension [None]
  - Acidosis [None]
  - Blood lactic acid increased [None]
  - Portal vein thrombosis [None]
  - Pneumonia [None]
  - Haemodialysis [None]
  - Anaemia [None]
  - Intra-abdominal haematoma [None]
  - Urine output increased [None]
  - Pleural effusion [None]
  - Hypoxia [None]

NARRATIVE: CASE EVENT DATE: 20220324
